FAERS Safety Report 8364111-0 (Version None)
Quarter: 2012Q2

REPORT INFORMATION
  Report Type: 
  Country: None (occurrence: None)
  Receive Date: 20120516
  Receipt Date: 20120510
  Transmission Date: 20120825
  Serious: Yes (Hospitalization, Other)
  Sender: FDA-Public Use
  Company Number: BR-PFIZER INC-2012023153

PATIENT
  Age: 59 Year
  Sex: Female
  Weight: 72 kg

DRUGS (2)
  1. SUTENT [Suspect]
     Indication: PANCREATIC NEUROENDOCRINE TUMOUR
     Dosage: 37.5 MG, 1X/DAY
     Route: 048
     Dates: start: 20111229
  2. SUTENT [Suspect]
     Indication: NEUROENDOCRINE TUMOUR

REACTIONS (13)
  - BLOOD CREATININE INCREASED [None]
  - TUMOUR HAEMORRHAGE [None]
  - LUNG DISORDER [None]
  - CHOLECYSTITIS INFECTIVE [None]
  - NEPHROLITHIASIS [None]
  - AGEUSIA [None]
  - ORAL PAIN [None]
  - RENAL IMPAIRMENT [None]
  - SEPTIC SHOCK [None]
  - HEPATIC FUNCTION ABNORMAL [None]
  - HYPERTENSION [None]
  - DYSPHAGIA [None]
  - GINGIVAL BLEEDING [None]
